FAERS Safety Report 8074197-9 (Version None)
Quarter: 2012Q1

REPORT INFORMATION
  Report Type: 
  Country: None (occurrence: None)
  Receive Date: 20120126
  Receipt Date: 20120119
  Transmission Date: 20120608
  Serious: Yes (Other)
  Sender: FDA-Public Use
  Company Number: US-PFIZER INC-2011302661

PATIENT
  Sex: Male
  Weight: 74.8 kg

DRUGS (3)
  1. DILANTIN [Suspect]
     Indication: EPILEPSY
     Dosage: UNK
     Route: 048
     Dates: start: 19980101, end: 19980101
  2. PHENYTEK [Concomitant]
     Indication: EPILEPSY
     Dosage: 500 MG, 1X/DAY
     Route: 048
     Dates: start: 19980101
  3. DILANTIN [Suspect]
     Dosage: 50 MG
     Dates: start: 19970101

REACTIONS (2)
  - FEELING DRUNK [None]
  - DRUG LEVEL FLUCTUATING [None]
